FAERS Safety Report 7466932-5 (Version None)
Quarter: 2011Q2

REPORT INFORMATION
  Report Type: 
  Country: None (occurrence: None)
  Receive Date: 20110509
  Receipt Date: 20100922
  Transmission Date: 20111010
  Serious: No
  Sender: FDA-Public Use
  Company Number: US-ALEXION-A201001216

PATIENT
  Sex: Female

DRUGS (3)
  1. SOLIRIS [Suspect]
     Indication: PAROXYSMAL NOCTURNAL HAEMOGLOBINURIA
     Dosage: UNK
     Route: 042
  2. OXYCODONE [Concomitant]
     Dosage: UNK
  3. EXJADE [Concomitant]
     Indication: BLOOD IRON INCREASED
     Dosage: UNK

REACTIONS (3)
  - MUSCLE STRAIN [None]
  - BLOOD GLUCOSE INCREASED [None]
  - AMENORRHOEA [None]
